FAERS Safety Report 9334323 (Version 1)
Quarter: 2013Q2

REPORT INFORMATION
  Report Type: Spontaneous
  Country: US (occurrence: US)
  Receive Date: 20130606
  Receipt Date: 20130606
  Transmission Date: 20140414
  Serious: No
  Sender: FDA-Public Use
  Company Number: US-AMGEN-USASP2013001056

PATIENT
  Age: 57 Year
  Sex: Female

DRUGS (2)
  1. PROLIA [Suspect]
     Indication: OSTEOPOROSIS POSTMENOPAUSAL
     Dosage: 60 MG, UNK
     Dates: start: 20121226
  2. HYDROCODONE [Concomitant]
     Dates: start: 201212

REACTIONS (8)
  - Injection site pain [Unknown]
  - Night sweats [Unknown]
  - Pyrexia [Unknown]
  - Chills [Unknown]
  - Pollakiuria [Unknown]
  - Agitation [Unknown]
  - Weight decreased [Unknown]
  - Sleep disorder [Unknown]
